FAERS Safety Report 21763122 (Version 2)
Quarter: 2023Q1

REPORT INFORMATION
  Report Type: Spontaneous
  Country: US (occurrence: US)
  Receive Date: 20221221
  Receipt Date: 20230130
  Transmission Date: 20230418
  Serious: No
  Sender: FDA-Public Use
  Company Number: US-Blueprint Medicines Corporation-657

PATIENT
  Sex: Male

DRUGS (2)
  1. AYVAKIT [Suspect]
     Active Substance: AVAPRITINIB
     Indication: Brain neoplasm malignant
     Route: 065
     Dates: start: 20221008
  2. AYVAKIT [Suspect]
     Active Substance: AVAPRITINIB
     Indication: Brain neoplasm malignant
     Route: 065
     Dates: start: 20221008

REACTIONS (6)
  - Platelet count decreased [Recovering/Resolving]
  - Asthenia [Not Recovered/Not Resolved]
  - Constipation [Recovering/Resolving]
  - Erythema [Recovering/Resolving]
  - Off label use [Unknown]
  - Product use complaint [Unknown]
